FAERS Safety Report 9518067 (Version 2)
Quarter: 2013Q4

REPORT INFORMATION
  Report Type: Spontaneous
  Country: US (occurrence: US)
  Receive Date: 20130912
  Receipt Date: 20131025
  Transmission Date: 20140711
  Serious: No
  Sender: FDA-Public Use
  Company Number: US-009507513-1309USA003224

PATIENT
  Sex: Female

DRUGS (4)
  1. IMPLANON [Suspect]
     Dosage: UNK
     Route: 059
     Dates: end: 2012
  2. YELLOW FEVER VIRUS VACCINE [Suspect]
     Indication: PROPHYLAXIS
     Dates: start: 201203, end: 201203
  3. SMALLPOX VACCINE [Suspect]
     Indication: PROPHYLAXIS
     Dates: start: 201203, end: 201203
  4. TETANUS TOXOID [Suspect]
     Indication: PROPHYLAXIS
     Dates: start: 201203, end: 201203

REACTIONS (7)
  - Implant site pain [Recovered/Resolved]
  - Metrorrhagia [Unknown]
  - Pain in extremity [Unknown]
  - Local swelling [Recovered/Resolved]
  - Injection site swelling [Recovered/Resolved]
  - Injection site pain [Recovered/Resolved]
  - Injection site erythema [Recovered/Resolved]
